FAERS Safety Report 6385366-8 (Version None)
Quarter: 2009Q4

REPORT INFORMATION
  Report Type: 
  Country: None (occurrence: None)
  Receive Date: 20091002
  Receipt Date: 20090422
  Transmission Date: 20100525
  Serious: No
  Sender: FDA-Public Use
  Company Number: US-ASTRAZENECA-2008UW17761

PATIENT
  Sex: Female

DRUGS (8)
  1. ARIMIDEX [Suspect]
     Indication: BREAST CANCER
     Route: 048
     Dates: start: 20080701
  2. BIPOLAR DRUGS [Interacting]
  3. LAMICTAL [Concomitant]
  4. RISPERDAL [Concomitant]
  5. ADDERALL 10 [Concomitant]
  6. XANAX [Concomitant]
  7. SYNTHROID [Concomitant]
  8. CALCIUM [Concomitant]

REACTIONS (5)
  - ARTHRALGIA [None]
  - CONSTIPATION [None]
  - DRUG INTERACTION [None]
  - ROSACEA [None]
  - SKIN DISORDER [None]
